FAERS Safety Report 12603836 (Version 1)
Quarter: 2016Q3

REPORT INFORMATION
  Report Type: Spontaneous
  Country: US (occurrence: US)
  Receive Date: 20160728
  Receipt Date: 20160728
  Transmission Date: 20161109
  Serious: No
  Sender: FDA-Public Use
  Company Number: US-MYLANLABS-2016M1017638

PATIENT
  Sex: Female

DRUGS (1)
  1. LEVOTHYROXINE SODIUM TABLETS, USP [Suspect]
     Active Substance: LEVOTHYROXINE SODIUM
     Indication: HYPOTHYROIDISM
     Dosage: 100 ?G, QD
     Route: 048
     Dates: end: 201604

REACTIONS (4)
  - Headache [Recovered/Resolved]
  - Dyspepsia [Recovered/Resolved]
  - Dysgeusia [Recovered/Resolved]
  - Rhinorrhoea [Recovered/Resolved]

NARRATIVE: CASE EVENT DATE: 201604
